FAERS Safety Report 5963425-9 (Version None)
Quarter: 2008Q4

REPORT INFORMATION
  Report Type: 
  Country: None (occurrence: None)
  Receive Date: 20081120
  Receipt Date: 20081111
  Transmission Date: 20090506
  Serious: Yes (Hospitalization)
  Sender: FDA-Public Use
  Company Number: 2008S1000589

PATIENT
  Age: 61 Year
  Sex: Female
  Weight: 118.3888 kg

DRUGS (15)
  1. DARVOCET-N 100 [Suspect]
     Dosage: Q6H; PO
     Route: 048
     Dates: end: 20080626
  2. ROXICODONE [Suspect]
     Dosage: 5 MG;Q6H;PO
     Route: 048
     Dates: end: 20080626
  3. BACTRIM [Concomitant]
  4. ACTOS [Concomitant]
  5. CYMBALTA [Concomitant]
  6. NEXIUM [Concomitant]
  7. GLUCOVANCE [Concomitant]
  8. LASIX [Concomitant]
  9. PROMETHAZINE [Concomitant]
  10. LIPITOR [Concomitant]
  11. MONELUKAST [Concomitant]
  12. IRON [Concomitant]
  13. ALBUTEROL [Concomitant]
  14. SU-110, 248 (SUNITINIB MALATE) [Concomitant]
  15. LORTAB [Suspect]
     Dosage: QD;PO
     Route: 048
     Dates: start: 20061030

REACTIONS (4)
  - CONFUSIONAL STATE [None]
  - MASTOIDITIS [None]
  - NAUSEA [None]
  - VOMITING [None]
